FAERS Safety Report 9705592 (Version 1)
Quarter: 2013Q4

REPORT INFORMATION
  Report Type: Spontaneous
  Country: US (occurrence: US)
  Receive Date: 20131122
  Receipt Date: 20131122
  Transmission Date: 20140711
  Serious: No
  Sender: FDA-Public Use
  Company Number: US-GILEAD-2008-0017056

PATIENT
  Age: 80 Year
  Sex: Female

DRUGS (9)
  1. LETAIRIS [Suspect]
     Indication: PULMONARY HYPERTENSION
     Route: 048
     Dates: start: 20080501, end: 20080605
  2. VYTORIN [Concomitant]
     Route: 048
  3. TOPROL XL [Concomitant]
     Route: 048
  4. PLAVIX [Concomitant]
     Route: 048
  5. FUROSEMIDE [Concomitant]
     Route: 048
  6. FOSAMAX [Concomitant]
     Route: 048
  7. COZAAR [Concomitant]
     Route: 048
  8. ALPRAZOLAM [Concomitant]
     Route: 048
  9. CENTRUM SILVER [Concomitant]
     Route: 048

REACTIONS (1)
  - Dizziness [Unknown]
